FAERS Safety Report 4516739-3 (Version None)
Quarter: 2004Q4

REPORT INFORMATION
  Report Type: 
  Country: None (occurrence: None)
  Receive Date: 20041005
  Receipt Date: 20040917
  Transmission Date: 20050328
  Serious: No
  Sender: FDA-Public Use
  Company Number: 238455

PATIENT
  Age: 29 Year
  Sex: Female
  Weight: 56.7 kg

DRUGS (5)
  1. NOVOLOG [Suspect]
     Indication: DIABETES MELLITUS INSULIN-DEPENDENT
     Dosage: 6 X QD, SS, SUBCUTANEOUS
     Route: 058
     Dates: start: 20040730
  2. COZAAR [Concomitant]
  3. ATENOLOL [Concomitant]
  4. ZOCOR [Concomitant]
  5. NOR-QD [Concomitant]

REACTIONS (1)
  - BLOOD GLUCOSE INCREASED [None]
